FAERS Safety Report 16107943 (Version 1)
Quarter: 2019Q1

REPORT INFORMATION
  Report Type: Spontaneous
  Country: IT (occurrence: US)
  Receive Date: 20190322
  Receipt Date: 20190322
  Transmission Date: 20190418
  Serious: No
  Sender: FDA-Public Use
  Company Number: IT-009507513-1903USA008591

PATIENT
  Age: 48 Year
  Sex: Female

DRUGS (2)
  1. NUVARING [Suspect]
     Active Substance: ETHINYL ESTRADIOL\ETONOGESTREL
     Indication: CHEMICAL CONTRACEPTION
     Dosage: 0.12MG/0.015MG, DAILY
     Route: 067
  2. NUVARING [Suspect]
     Active Substance: ETHINYL ESTRADIOL\ETONOGESTREL
     Dosage: 0.12MG/0.015MG, DAILY
     Route: 067

REACTIONS (1)
  - Therapeutic response unexpected [Unknown]
